FAERS Safety Report 23691523 (Version 2)
Quarter: 2024Q2

REPORT INFORMATION
  Report Type: Spontaneous
  Country: US (occurrence: US)
  Receive Date: 20240401
  Receipt Date: 20240409
  Transmission Date: 20240716
  Serious: Yes (Life-Threatening, Hospitalization, Other)
  Sender: FDA-Public Use
  Company Number: US-Accord-414659

PATIENT
  Age: 67 Year
  Sex: Male

DRUGS (1)
  1. ATORVASTATIN [Suspect]
     Active Substance: ATORVASTATIN
     Indication: Hyperlipidaemia

REACTIONS (8)
  - Respiratory distress [Recovered/Resolved]
  - Immune-mediated myositis [Recovered/Resolved]
  - Respiratory failure [Recovered/Resolved]
  - Paralysis [Recovered/Resolved]
  - Dysphagia [Recovered/Resolved]
  - Alanine aminotransferase increased [Recovered/Resolved]
  - Aspartate aminotransferase increased [Recovered/Resolved]
  - Blood thyroid stimulating hormone increased [Recovered/Resolved]
